FAERS Safety Report 9017636 (Version 2)
Quarter: 2013Q1

REPORT INFORMATION
  Report Type: Report from Study
  Country: US (occurrence: US)
  Receive Date: 20130117
  Receipt Date: 20130123
  Transmission Date: 20140127
  Serious: Yes (Other)
  Sender: FDA-Public Use
  Company Number: US-ABBOTT-13P-163-1033252-00

PATIENT
  Sex: Male

DRUGS (12)
  1. NIASPAN (COATED) [Suspect]
     Indication: HIGH DENSITY LIPOPROTEIN DECREASED
     Dosage: EVERY DAY
  2. NIASPAN (COATED) [Suspect]
     Dosage: EVERY DAY
  3. NIASPAN (COATED) [Suspect]
     Dosage: EVERY DAY
  4. INVESTIGATIONAL DRUG [Suspect]
     Indication: EJECTION FRACTION DECREASED
  5. ZOCOR [Concomitant]
     Indication: PRODUCT USED FOR UNKNOWN INDICATION
  6. ASA [Concomitant]
     Indication: PRODUCT USED FOR UNKNOWN INDICATION
  7. LASIX [Concomitant]
     Indication: PRODUCT USED FOR UNKNOWN INDICATION
  8. ZOLOFT [Concomitant]
     Indication: PRODUCT USED FOR UNKNOWN INDICATION
  9. COREG [Concomitant]
     Indication: PRODUCT USED FOR UNKNOWN INDICATION
  10. PLAVIX [Concomitant]
     Indication: PRODUCT USED FOR UNKNOWN INDICATION
  11. ENALAPRIL [Concomitant]
     Indication: PRODUCT USED FOR UNKNOWN INDICATION
  12. INSPRA [Concomitant]
     Indication: PRODUCT USED FOR UNKNOWN INDICATION

REACTIONS (7)
  - Cerebrovascular accident [Recovered/Resolved]
  - Flushing [Unknown]
  - Burning sensation [Recovered/Resolved]
  - Visual acuity reduced [Not Recovered/Not Resolved]
  - Blindness unilateral [Recovered/Resolved with Sequelae]
  - Retinal artery thrombosis [Recovered/Resolved with Sequelae]
  - Ocular vascular disorder [Recovered/Resolved with Sequelae]
